FAERS Safety Report 17592126 (Version 3)
Quarter: 2020Q2

REPORT INFORMATION
  Report Type: Report from Study
  Country: None (occurrence: US)
  Receive Date: 20200327
  Receipt Date: 20200504
  Transmission Date: 20200713
  Serious: Yes (Other)
  Sender: FDA-Public Use
  Company Number: US-ABBVIE-20P-163-3272701-00

PATIENT
  Sex: Male

DRUGS (3)
  1. IMBRUVICA [Suspect]
     Active Substance: IBRUTINIB
     Route: 048
     Dates: start: 20200131
  2. IMBRUVICA [Suspect]
     Active Substance: IBRUTINIB
     Indication: CHRONIC LYMPHOCYTIC LEUKAEMIA
     Route: 048
     Dates: start: 20200204
  3. IMBRUVICA [Suspect]
     Active Substance: IBRUTINIB
     Route: 048
     Dates: start: 20200203, end: 20200213

REACTIONS (16)
  - Flushing [Unknown]
  - Headache [Recovering/Resolving]
  - Dyspepsia [Unknown]
  - Fatigue [Unknown]
  - Gastrointestinal disorder [Unknown]
  - Depression [Unknown]
  - Arthralgia [Unknown]
  - Chills [Unknown]
  - Bowel movement irregularity [Unknown]
  - Gastrointestinal motility disorder [Unknown]
  - Suicidal ideation [Unknown]
  - Joint swelling [Unknown]
  - Eye disorder [Unknown]
  - Arthropathy [Unknown]
  - Constipation [Recovering/Resolving]
  - Muscle disorder [Unknown]

NARRATIVE: CASE EVENT DATE: 2020
